FAERS Safety Report 18100356 (Version 2)
Quarter: 2020Q3

REPORT INFORMATION
  Report Type: Spontaneous
  Country: BR (occurrence: BR)
  Receive Date: 20200801
  Receipt Date: 20200801
  Transmission Date: 20201103
  Serious: Yes (Hospitalization, Other)
  Sender: FDA-Public Use
  Company Number: BR-SUN PHARMACEUTICAL INDUSTRIES LTD-2020R1-254816

PATIENT
  Age: 44 Year
  Sex: Female

DRUGS (7)
  1. FENTANYL. [Suspect]
     Active Substance: FENTANYL
     Indication: COVID-19
     Dosage: UNK
     Route: 065
     Dates: start: 2020
  2. CEFTRIAXONE. [Suspect]
     Active Substance: CEFTRIAXONE
     Indication: COVID-19
     Dosage: UNK
     Route: 065
     Dates: start: 202003
  3. MIDAZOLAM. [Suspect]
     Active Substance: MIDAZOLAM
     Indication: COVID-19
     Dosage: UNK
     Route: 065
     Dates: start: 2020
  4. NORADRENALINE [Suspect]
     Active Substance: NOREPINEPHRINE
     Indication: COVID-19
     Dosage: UNK
     Route: 065
     Dates: start: 2020
  5. OSELTAMIVIR [Suspect]
     Active Substance: OSELTAMIVIR
     Indication: COVID-19
     Dosage: UNK
     Route: 065
     Dates: start: 202003
  6. AZITHROMYCIN ANHYDROUS. [Suspect]
     Active Substance: AZITHROMYCIN ANHYDROUS
     Indication: COVID-19
     Dosage: UNK
     Route: 065
     Dates: start: 202003
  7. HYDROXYCHLOROQUINE [Suspect]
     Active Substance: HYDROXYCHLOROQUINE
     Indication: COVID-19
     Dosage: UNK
     Route: 065
     Dates: start: 202003

REACTIONS (4)
  - Off label use [Unknown]
  - Exposure during pregnancy [Unknown]
  - Premature delivery [Unknown]
  - Condition aggravated [Unknown]

NARRATIVE: CASE EVENT DATE: 2020
